FAERS Safety Report 11227493 (Version 2)
Quarter: 2015Q3

REPORT INFORMATION
  Report Type: Spontaneous
  Country: US (occurrence: None)
  Receive Date: 20150626
  Receipt Date: 20150720
  Transmission Date: 20151125
  Serious: Yes (Hospitalization)
  Sender: FDA-Public Use
  Company Number: NMS-00147

PATIENT
  Age: 38 Year
  Sex: Male

DRUGS (1)
  1. NITROGLYCERIN. [Suspect]
     Active Substance: NITROGLYCERIN
     Indication: CHEST PAIN

REACTIONS (8)
  - Neck injury [None]
  - West Nile viral infection [None]
  - Loss of consciousness [None]
  - Head injury [None]
  - Drug ineffective [None]
  - Joint injury [None]
  - Myocarditis [None]
  - Fall [None]
